FAERS Safety Report 6453950-9 (Version None)
Quarter: 2009Q4

REPORT INFORMATION
  Report Type: 
  Country: None (occurrence: None)
  Receive Date: 20091124
  Receipt Date: 20091120
  Transmission Date: 20100525
  Serious: Yes (Death)
  Sender: FDA-Public Use
  Company Number: AU-ASTRAZENECA-2009SE27710

PATIENT
  Age: 23423 Day
  Sex: Female

DRUGS (2)
  1. ATACAND [Suspect]
     Route: 048
  2. SERTRALINE HYDROCHLORIDE [Concomitant]

REACTIONS (2)
  - CARDIAC DISORDER [None]
  - SUDDEN DEATH [None]
